FAERS Safety Report 7908995-6 (Version None)
Quarter: 2011Q4

REPORT INFORMATION
  Report Type: 
  Country: None (occurrence: None)
  Receive Date: 20111111
  Receipt Date: 20111104
  Transmission Date: 20120403
  Serious: Yes (Life-Threatening, Hospitalization)
  Sender: FDA-Public Use
  Company Number: PHHY2011NL94385

PATIENT
  Sex: Female

DRUGS (3)
  1. TASIGNA [Suspect]
     Indication: CHRONIC MYELOID LEUKAEMIA
     Dosage: 300 MG, DAILY
     Route: 048
     Dates: start: 20111003
  2. PAROXETINE HCL [Concomitant]
  3. HYDREA [Concomitant]

REACTIONS (4)
  - ANAEMIA [None]
  - CONTUSION [None]
  - PANCYTOPENIA [None]
  - THROMBOCYTOPENIA [None]
